FAERS Safety Report 4908847-X (Version None)
Quarter: 2006Q1

REPORT INFORMATION
  Report Type: 
  Country: None (occurrence: None)
  Receive Date: 20060210
  Receipt Date: 20051205
  Transmission Date: 20060701
  Serious: No
  Sender: FDA-Public Use
  Company Number: US-GLAXOSMITHKLINE-A0584642A

PATIENT
  Age: 43 Year
  Sex: Female

DRUGS (4)
  1. PAXIL CR [Suspect]
     Dosage: 12.5MG PER DAY
     Route: 048
     Dates: start: 20050101
  2. PAROXETINE HCL [Suspect]
     Route: 048
  3. LO/OVRAL [Concomitant]
  4. TOPROL-XL [Concomitant]

REACTIONS (3)
  - ADVERSE EVENT [None]
  - FEELING ABNORMAL [None]
  - STOMACH DISCOMFORT [None]
